FAERS Safety Report 17519727 (Version 1)
Quarter: 2020Q1

REPORT INFORMATION
  Report Type: Spontaneous
  Country: US (occurrence: US)
  Receive Date: 20200228
  Receipt Date: 20200228
  Transmission Date: 20200409
  Serious: Yes (Hospitalization)
  Sender: FDA-Public Use
  Company Number: None

PATIENT
  Sex: Female

DRUGS (14)
  1. MYCOPHENOLATE 250MG + 500MG [Suspect]
     Active Substance: MYCOPHENOLIC ACID
     Indication: RENAL TRANSPLANT
     Route: 048
     Dates: start: 20140311
  2. AMIDARONE [Concomitant]
     Active Substance: AMIODARONE
  3. PREDNISONE. [Concomitant]
     Active Substance: PREDNISONE
  4. PRILOSEC [Concomitant]
     Active Substance: OMEPRAZOLE MAGNESIUM
  5. ATORVASTATIN [Concomitant]
     Active Substance: ATORVASTATIN
  6. LANTUS [Concomitant]
     Active Substance: INSULIN GLARGINE
  7. LISINOPRIL. [Concomitant]
     Active Substance: LISINOPRIL
  8. BUMEANIDE [Concomitant]
  9. FISH OIL [Concomitant]
     Active Substance: FISH OIL
  10. TACROLIMUS  0.5MG [Suspect]
     Active Substance: TACROLIMUS
     Route: 048
     Dates: start: 20141115
  11. PT CL [Concomitant]
  12. XARELTO [Concomitant]
     Active Substance: RIVAROXABAN
  13. LOPRESSOR METOPROL TAR [Concomitant]
  14. NOVOLOG [Concomitant]
     Active Substance: INSULIN ASPART

REACTIONS (2)
  - Hospitalisation [None]
  - Ill-defined disorder [None]
